FAERS Safety Report 8538690-4 (Version None)
Quarter: 2012Q3

REPORT INFORMATION
  Report Type: 
  Country: None (occurrence: None)
  Receive Date: 20120726
  Receipt Date: 20120716
  Transmission Date: 20120928
  Serious: Yes (Hospitalization)
  Sender: FDA-Public Use
  Company Number: US-BAYER-2012-022458

PATIENT
  Age: 28 Year
  Sex: Female
  Weight: 95.238 kg

DRUGS (17)
  1. CLOTRIMAZOLE W/BETAMETHASONE DIPROPIONAT [Concomitant]
     Dosage: 1/0.05%
     Route: 061
  2. TAMIFLU [Concomitant]
     Dosage: 75 MG, UNK
     Route: 048
  3. NEXIUM [Concomitant]
  4. FEXOFENADINE [Concomitant]
     Indication: MULTIPLE ALLERGIES
     Dosage: 180 MG, UNK
     Route: 048
     Dates: start: 20080101, end: 20110101
  5. METHOCARBAMOL [Concomitant]
     Dosage: 750 MG, UNK
     Route: 048
  6. YAZ [Suspect]
     Indication: CONTRACEPTION
     Dosage: UNK
     Dates: start: 20100301, end: 20101101
  7. AZITHROMYCIN [Concomitant]
     Dosage: 250 MG, UNK
     Route: 048
  8. PRILOSEC [Concomitant]
  9. TERCONAZOLE [Concomitant]
     Indication: FUNGAL INFECTION
     Dosage: 0.4 %, UNK
     Route: 061
     Dates: start: 20080530, end: 20110825
  10. CHLORPHENAMINE W/DEXTROMETHORPHAN [Concomitant]
     Dosage: 15-12.5-4MG/5ML
     Route: 048
  11. OMEPRAZOLE [Concomitant]
     Dosage: 20 MG, UNK
     Route: 048
     Dates: start: 20100216, end: 20100327
  12. YAZ [Suspect]
     Indication: PREMENSTRUAL SYNDROME
  13. METRONIDAZOLE [Concomitant]
     Indication: SKIN DISORDER
     Dosage: 500 MG, UNK
     Route: 048
     Dates: start: 20080423, end: 20111018
  14. PROAIR HFA [Concomitant]
     Indication: ASTHMA
     Dosage: 90 MCG/24HR, UNK
     Route: 045
     Dates: start: 20080815, end: 20111018
  15. FLUTICASONE PROPIONATE [Concomitant]
     Indication: HYPERSENSITIVITY
     Dosage: 50 MCG/24HR, UNK
     Route: 045
     Dates: start: 20080101, end: 20110101
  16. RANITIDINE HYDROCHLORIDE [Concomitant]
     Dosage: 150 MG, UNK
     Route: 048
     Dates: start: 20100216, end: 20100327
  17. ALBUTEROL [Concomitant]

REACTIONS (8)
  - PAIN [None]
  - GENERAL PHYSICAL HEALTH DETERIORATION [None]
  - GALLBLADDER INJURY [None]
  - ANXIETY [None]
  - EMOTIONAL DISTRESS [None]
  - HEADACHE [None]
  - CHOLECYSTITIS CHRONIC [None]
  - INJURY [None]
